FAERS Safety Report 6824714-9 (Version None)
Quarter: 2010Q3

REPORT INFORMATION
  Report Type: 
  Country: None (occurrence: None)
  Receive Date: 20100708
  Receipt Date: 20061119
  Transmission Date: 20110219
  Serious: No
  Sender: FDA-Public Use
  Company Number: US-PFIZER INC-2006146905

PATIENT
  Sex: Male
  Weight: 86.18 kg

DRUGS (8)
  1. CHANTIX [Suspect]
     Indication: SMOKING CESSATION THERAPY
     Route: 048
     Dates: start: 20061101, end: 20061101
  2. MS CONTIN [Concomitant]
     Route: 048
  3. DURAGESIC-100 [Concomitant]
  4. ALPRAZOLAM [Concomitant]
     Route: 048
  5. LORTAB [Concomitant]
     Indication: BREAKTHROUGH PAIN
     Route: 048
  6. SOMA [Concomitant]
     Route: 048
  7. ZELNORM [Concomitant]
     Route: 048
  8. BACLOFEN [Concomitant]

REACTIONS (2)
  - HEADACHE [None]
  - MOOD SWINGS [None]
